FAERS Safety Report 13553787 (Version 1)
Quarter: 2017Q2

REPORT INFORMATION
  Report Type: Report from Study
  Country: None (occurrence: BR)
  Receive Date: 20170517
  Receipt Date: 20170517
  Transmission Date: 20170830
  Serious: Yes (Other)
  Sender: FDA-Public Use
  Company Number: BR-ABBVIE-16K-020-1683911-00

PATIENT
  Age: 58 Year
  Sex: Female
  Weight: 69 kg

DRUGS (10)
  1. FIXA CAL [Concomitant]
     Active Substance: MINERALS\VITAMINS
     Indication: BONE DISORDER
     Route: 048
     Dates: start: 201604
  2. HALOPERIDOL. [Concomitant]
     Active Substance: HALOPERIDOL
     Indication: OSTEOARTHRITIS
     Route: 048
     Dates: start: 2012
  3. CRISPRED [Concomitant]
     Indication: PSORIASIS
     Route: 048
     Dates: start: 201604
  4. CARISOPRODOL. [Concomitant]
     Active Substance: CARISOPRODOL
     Indication: OSTEOARTHRITIS
     Route: 048
     Dates: start: 2012
  5. PARACETAMOL [Concomitant]
     Active Substance: ACETAMINOPHEN
     Indication: OSTEOARTHRITIS
     Route: 048
     Dates: start: 2012
  6. CHLOROQUINE. [Concomitant]
     Active Substance: CHLOROQUINE
     Indication: OSTEOARTHRITIS
     Route: 048
     Dates: start: 2012
  7. DIACEREIN [Concomitant]
     Active Substance: DIACEREIN
     Indication: OSTEOARTHRITIS
     Route: 048
     Dates: start: 2012
  8. METHOTREXATE. [Concomitant]
     Active Substance: METHOTREXATE
     Indication: RHEUMATIC DISORDER
     Route: 048
     Dates: start: 201604
  9. HUMIRA [Suspect]
     Active Substance: ADALIMUMAB
     Indication: RHEUMATOID ARTHRITIS
     Route: 058
     Dates: start: 20160225, end: 201611
  10. NEO FOLICO [Concomitant]
     Indication: ARTHRITIS
     Route: 048
     Dates: start: 201604

REACTIONS (9)
  - Hypotension [Recovering/Resolving]
  - Neck pain [Recovered/Resolved]
  - Headache [Unknown]
  - Hypotension [Recovered/Resolved]
  - Headache [Recovered/Resolved]
  - Malaise [Recovering/Resolving]
  - Dyspnoea [Recovering/Resolving]
  - Malaise [Recovered/Resolved]
  - Chills [Unknown]

NARRATIVE: CASE EVENT DATE: 20160701
